FAERS Safety Report 8374821-7 (Version None)
Quarter: 2012Q2

REPORT INFORMATION
  Report Type: 
  Country: None (occurrence: None)
  Receive Date: 20120521
  Receipt Date: 20120509
  Transmission Date: 20120825
  Serious: Yes (Hospitalization, Other)
  Sender: FDA-Public Use
  Company Number: DE-JNJFOC-20120313371

PATIENT
  Sex: Male

DRUGS (15)
  1. GRANISETRON [Concomitant]
     Route: 065
     Dates: start: 20120208
  2. BISOPROLOL FUMARATE [Concomitant]
     Route: 065
     Dates: start: 20120123
  3. SODIUM CHLORIDE [Concomitant]
     Route: 065
     Dates: start: 20120123
  4. ESIDRIX [Concomitant]
     Route: 065
     Dates: start: 20120123
  5. SIMVASTATIN [Concomitant]
     Route: 065
     Dates: start: 20120123
  6. COTRIM DS [Concomitant]
     Route: 065
     Dates: start: 20120125
  7. LISINOPRIL [Concomitant]
     Route: 065
     Dates: start: 20120123
  8. DOXORUBICIN HCL [Suspect]
     Indication: B-CELL LYMPHOMA
     Route: 042
     Dates: start: 20120208, end: 20120208
  9. MABTHERA [Suspect]
     Indication: B-CELL LYMPHOMA
     Route: 042
     Dates: start: 20120207, end: 20120207
  10. CYTOXAN [Suspect]
     Indication: B-CELL LYMPHOMA
     Route: 042
     Dates: start: 20120208, end: 20120208
  11. PREDNISOLONE [Suspect]
     Indication: B-CELL LYMPHOMA
     Route: 048
     Dates: start: 20120208, end: 20120208
  12. NEULASTA [Suspect]
     Indication: CHEMOTHERAPY
     Route: 058
     Dates: start: 20120211, end: 20120211
  13. RAMIPRIL [Concomitant]
     Route: 065
     Dates: start: 20120123
  14. ALLOPURINOL [Concomitant]
     Route: 065
     Dates: start: 20120123
  15. VINCRISTINE [Suspect]
     Indication: B-CELL LYMPHOMA
     Route: 042
     Dates: start: 20120208, end: 20120208

REACTIONS (4)
  - COUGH [None]
  - BRONCHOPNEUMONIA [None]
  - INFECTION [None]
  - ANXIETY [None]
